FAERS Safety Report 11891977 (Version 1)
Quarter: 2016Q1

REPORT INFORMATION
  Report Type: Spontaneous
  Country: US (occurrence: US)
  Receive Date: 20160106
  Receipt Date: 20160106
  Transmission Date: 20160526
  Serious: No
  Sender: FDA-Public Use
  Company Number: US-AMNEAL PHARMACEUTICALS-2016AMN00001

PATIENT
  Age: 60 Year
  Sex: Male
  Weight: 82.99 kg

DRUGS (1)
  1. PHENYTOIN SODIUM. [Suspect]
     Active Substance: PHENYTOIN SODIUM
     Indication: SEIZURE
     Dosage: 400 MG, 1X/DAY
     Route: 048
     Dates: start: 201501

REACTIONS (1)
  - Drug level changed [Not Recovered/Not Resolved]

NARRATIVE: CASE EVENT DATE: 20150120
